FAERS Safety Report 9351509 (Version 2)
Quarter: 2013Q3

REPORT INFORMATION
  Report Type: Spontaneous
  Country: US (occurrence: US)
  Receive Date: 20130617
  Receipt Date: 20130724
  Transmission Date: 20140515
  Serious: Yes (Death)
  Sender: FDA-Public Use
  Company Number: US-CELGENEUS-163-21660-13062189

PATIENT
  Age: 56 Year
  Sex: Female

DRUGS (1)
  1. ABRAXANE [Suspect]
     Indication: LUNG NEOPLASM MALIGNANT
     Route: 065

REACTIONS (1)
  - Non-small cell lung cancer [Fatal]
